FAERS Safety Report 8180891-1 (Version None)
Quarter: 2012Q1

REPORT INFORMATION
  Report Type: 
  Country: None (occurrence: None)
  Receive Date: 20120302
  Receipt Date: 20100305
  Transmission Date: 20120608
  Serious: Yes (Hospitalization)
  Sender: FDA-Public Use
  Company Number: JP-BAYER-200914836BYL

PATIENT
  Age: 62 Year
  Sex: Male
  Weight: 60.8 kg

DRUGS (11)
  1. IMUNACE [Suspect]
     Dosage: 350 KIU (DAILY DOSE)
     Route: 042
     Dates: start: 20080727, end: 20080822
  2. IMUNACE [Suspect]
     Dosage: 350 KIU (DAILY DOSE)
     Route: 042
     Dates: start: 20081128, end: 20081219
  3. ATELEC [Concomitant]
     Dosage: 10 MG (DAILY DOSE), , ORAL
     Route: 048
     Dates: start: 20080623
  4. NEXAVAR [Suspect]
     Dosage: 800 MG (DAILY DOSE), , ORAL
     Route: 048
     Dates: start: 20080515, end: 20080803
  5. NEXAVAR [Suspect]
     Dosage: 200 MG (DAILY DOSE), , ORAL
     Route: 048
     Dates: start: 20090620, end: 20090712
  6. ALLOPURINOL [Concomitant]
     Dosage: 100 MG (DAILY DOSE), , ORAL
     Route: 048
     Dates: start: 20080623
  7. IMUNACE [Suspect]
     Dosage: 350 KIU (DAILY DOSE)
     Route: 042
     Dates: start: 20090305, end: 20090403
  8. SOLU-CORTEF [Concomitant]
     Dosage: 50 MG (DAILY DOSE), , INTRAVENOUS
     Route: 042
     Dates: start: 20081128, end: 20081219
  9. NEXAVAR [Suspect]
     Indication: RENAL CELL CARCINOMA
     Dosage: 400 MG (DAILY DOSE), , ORAL
     Route: 048
     Dates: start: 20080410, end: 20080515
  10. NEXAVAR [Suspect]
     Dosage: 600 MG (DAILY DOSE), , ORAL
     Route: 048
     Dates: start: 20080804, end: 20090604
  11. ALLOPURINOL [Concomitant]
     Dosage: 100 MG (DAILY DOSE), , ORAL
     Route: 048
     Dates: start: 20080410, end: 20080515

REACTIONS (3)
  - CEREBRAL INFARCTION [None]
  - DIARRHOEA [None]
  - HYPERTENSION [None]
